FAERS Safety Report 24624404 (Version 1)
Quarter: 2024Q4

REPORT INFORMATION
  Report Type: Report from Study
  Country: US (occurrence: US)
  Receive Date: 20241115
  Receipt Date: 20241115
  Transmission Date: 20250115
  Serious: Yes (Hospitalization, Other)
  Sender: GILEAD
  Company Number: US-GILEAD-2024-0693928

PATIENT
  Sex: Female

DRUGS (1)
  1. AZTREONAM LYSINE [Suspect]
     Active Substance: AZTREONAM LYSINE
     Indication: Cystic fibrosis lung
     Dosage: INHALE 1 VIAL (1 ML) VIA ALTERA NEBULIZER THREE TIMES DAILY ALTERNATING EVERY 28 DAYS WITH TOBI PODH
     Route: 055

REACTIONS (1)
  - Cystic fibrosis [Unknown]
